FAERS Safety Report 8470444-X (Version None)
Quarter: 2012Q2

REPORT INFORMATION
  Report Type: 
  Country: None (occurrence: None)
  Receive Date: 20120627
  Receipt Date: 20120617
  Transmission Date: 20120825
  Serious: Yes (Hospitalization)
  Sender: FDA-Public Use
  Company Number: IL-VERTEX PHARMACEUTICALS INC.-AE-2011-002887

PATIENT
  Sex: Female

DRUGS (1)
  1. VX-950 [Suspect]
     Indication: HEPATITIS C
     Route: 048

REACTIONS (4)
  - LIPASE INCREASED [None]
  - HOSPITALISATION [None]
  - BLOOD CREATININE INCREASED [None]
  - FEELING ABNORMAL [None]
